FAERS Safety Report 4973431-9 (Version None)
Quarter: 2006Q2

REPORT INFORMATION
  Report Type: 
  Country: None (occurrence: None)
  Receive Date: 20060410
  Receipt Date: 20060324
  Transmission Date: 20061013
  Serious: Yes (Hospitalization)
  Sender: FDA-Public Use
  Company Number: ACO_0223_2006

PATIENT
  Age: 58 Year
  Sex: Female

DRUGS (2)
  1. TIZANIDINE HCL [Suspect]
     Dosage: DF
  2. AVONEX [Concomitant]

REACTIONS (4)
  - CARBON DIOXIDE INCREASED [None]
  - CARDIAC FAILURE CONGESTIVE [None]
  - CONSCIOUSNESS FLUCTUATING [None]
  - OXYGEN SATURATION DECREASED [None]
